FAERS Safety Report 8592652-X (Version None)
Quarter: 2012Q3

REPORT INFORMATION
  Report Type: 
  Country: None (occurrence: None)
  Receive Date: 20120814
  Receipt Date: 20120808
  Transmission Date: 20120928
  Serious: Yes (Death, Hospitalization)
  Sender: FDA-Public Use
  Company Number: JP-ELI_LILLY_AND_COMPANY-JP201101004327

PATIENT
  Age: 55 Year
  Sex: Male

DRUGS (3)
  1. ANTIHYPERTENSIVES [Concomitant]
  2. CIALIS [Suspect]
     Route: 048
  3. ANTIBIOTICS [Concomitant]

REACTIONS (2)
  - INTERSTITIAL LUNG DISEASE [None]
  - PRODUCT COUNTERFEIT [None]
